FAERS Safety Report 5423745-3 (Version None)
Quarter: 2007Q3

REPORT INFORMATION
  Report Type: 
  Country: None (occurrence: None)
  Receive Date: 20070823
  Receipt Date: 20070813
  Transmission Date: 20080115
  Serious: Yes (Other)
  Sender: FDA-Public Use
  Company Number: US-KINGPHARMUSA00001-K200701029

PATIENT

DRUGS (4)
  1. CORTISPORIN [Suspect]
     Indication: SINUSITIS
     Dosage: INJECTED INTO HER NASAL CAVITY
     Dates: start: 20060401
  2. CLARITHROMYCIN [Concomitant]
     Dates: start: 20070701, end: 20070708
  3. LORAZEPAM [Concomitant]
     Dates: start: 20070221
  4. IPRATROPIUM BROMIDE [Concomitant]
     Dates: start: 20061017

REACTIONS (2)
  - INCORRECT ROUTE OF DRUG ADMINISTRATION [None]
  - SWELLING FACE [None]
